FAERS Safety Report 24282109 (Version 1)
Quarter: 2024Q3

REPORT INFORMATION
  Report Type: Spontaneous
  Country: CL (occurrence: CL)
  Receive Date: 20240904
  Receipt Date: 20240904
  Transmission Date: 20241016
  Serious: Yes (Death, Hospitalization, Other)
  Sender: Vantive US Healthcare
  Company Number: CL-VANTIVE-2024VAN019205

PATIENT
  Age: 68 Year
  Sex: Male

DRUGS (8)
  1. DIANEAL [Suspect]
     Active Substance: CALCIUM CHLORIDE\DEXTROSE\MAGNESIUM CHLORIDE\SODIUM CHLORIDE\SODIUM LACTATE
     Indication: Peritoneal dialysis
     Dosage: 6 LITER, 1 BAG PER DAY
     Route: 033
     Dates: start: 20240409, end: 20240805
  2. DIANEAL PD-2 WITH DEXTROSE [Suspect]
     Active Substance: CALCIUM CHLORIDE\DEXTROSE\MAGNESIUM CHLORIDE\SODIUM CHLORIDE\SODIUM LACTATE
     Indication: Peritoneal dialysis
     Dosage: 6 LITER, 2 BAGS PER DAY
     Route: 033
     Dates: start: 20240409, end: 20240805
  3. FOLIC ACID [Concomitant]
     Active Substance: FOLIC ACID
     Route: 065
  4. BISOPROLOL [Concomitant]
     Active Substance: BISOPROLOL\BISOPROLOL FUMARATE
     Route: 065
  5. ERYTHROPOIETIN [Concomitant]
     Active Substance: ERYTHROPOIETIN
     Route: 065
  6. FINERENONE [Concomitant]
     Active Substance: FINERENONE
     Route: 065
  7. SPIRONOLACTONE [Concomitant]
     Active Substance: SPIRONOLACTONE
     Route: 065
  8. POLYETHYLENE GLYCOL [Concomitant]
     Active Substance: POLYETHYLENE GLYCOL
     Route: 065

REACTIONS (2)
  - Death [Fatal]
  - Peritoneal dialysate leakage [Unknown]

NARRATIVE: CASE EVENT DATE: 20240805
